FAERS Safety Report 6047108-5 (Version None)
Quarter: 2009Q1

REPORT INFORMATION
  Report Type: 
  Country: None (occurrence: None)
  Receive Date: 20090122
  Receipt Date: 20081205
  Transmission Date: 20090719
  Serious: Yes (Hospitalization, Disabling, Other)
  Sender: FDA-Public Use
  Company Number: KR-ASTRAZENECA-2008AC03120

PATIENT
  Age: 75 Year
  Sex: Female

DRUGS (5)
  1. GEFITINIB [Suspect]
     Indication: NON-SMALL CELL LUNG CANCER STAGE IV
     Route: 048
     Dates: start: 20071013, end: 20080808
  2. AMLODIPINE [Concomitant]
     Indication: HYPERTENSION
     Dates: start: 19970101
  3. AZELASTINE HCL [Concomitant]
     Indication: RASH
     Dates: start: 20071219, end: 20080811
  4. TRIMEBUTINE [Concomitant]
     Indication: GASTROINTESTINAL MOTILITY DISORDER
     Dates: start: 20080719, end: 20080812
  5. AMBROXOL [Concomitant]
     Indication: PRODUCTIVE COUGH
     Route: 048
     Dates: start: 20071206, end: 20080812

REACTIONS (2)
  - RASH [None]
  - SUBDURAL HAEMORRHAGE [None]
